FAERS Safety Report 9568624 (Version 2)
Quarter: 2013Q3

REPORT INFORMATION
  Report Type: Spontaneous
  Country: US (occurrence: US)
  Receive Date: 20130930
  Receipt Date: 20130930
  Transmission Date: 20140515
  Serious: No
  Sender: FDA-Public Use
  Company Number: US-AMGEN-USASP2013058549

PATIENT
  Age: 52 Year
  Sex: Male
  Weight: 117.91 kg

DRUGS (4)
  1. ENBREL [Suspect]
     Indication: PSORIASIS
     Dosage: UNK
     Route: 065
     Dates: start: 2011
  2. CLARITIN                           /00917501/ [Concomitant]
     Dosage: UNK
  3. IBUPROFEN [Concomitant]
     Dosage: UNK
  4. TYLENOL                            /00020001/ [Concomitant]
     Dosage: UNK

REACTIONS (2)
  - Therapeutic response decreased [Unknown]
  - Psoriasis [Unknown]
